FAERS Safety Report 4887747-8 (Version None)
Quarter: 2006Q1

REPORT INFORMATION
  Report Type: 
  Country: None (occurrence: None)
  Receive Date: 20060123
  Receipt Date: 20060117
  Transmission Date: 20060701
  Serious: Yes (Life-Threatening)
  Sender: FDA-Public Use
  Company Number: GB-AVENTIS-200610553GDDC

PATIENT
  Age: 13 Year
  Sex: Male
  Weight: 42 kg

DRUGS (8)
  1. METRONIDAZOLE [Suspect]
     Indication: PERIORBITAL CELLULITIS
     Route: 042
     Dates: start: 20051229, end: 20060102
  2. CEFTRIAXONE [Concomitant]
     Indication: PERIORBITAL CELLULITIS
     Route: 042
     Dates: start: 20051231, end: 20060104
  3. BENZYLPENICILLIN [Concomitant]
     Indication: PERIORBITAL CELLULITIS
     Route: 042
     Dates: start: 20060101, end: 20060104
  4. OTRIVINE [Concomitant]
     Dosage: DOSE: 1 APPLICATION QID
     Route: 045
     Dates: start: 20051229
  5. CHLORAMPHENICOL [Concomitant]
     Indication: PERIORBITAL CELLULITIS
     Dosage: DOSE: 1 APPLICATION QID
     Route: 047
     Dates: start: 20051230
  6. PARACETAMOL [Concomitant]
     Route: 048
  7. IBUPROFEN [Concomitant]
     Route: 048
  8. CODEINE PHOSPHATE [Concomitant]

REACTIONS (1)
  - CONVULSION [None]
